FAERS Safety Report 6480199-6 (Version None)
Quarter: 2009Q4

REPORT INFORMATION
  Report Type: 
  Country: None (occurrence: None)
  Receive Date: 20091119
  Receipt Date: 20090804
  Transmission Date: 20100525
  Serious: No
  Sender: FDA-Public Use
  Company Number: WAES 0908USA00598

PATIENT
  Age: 54 Year
  Sex: Male

DRUGS (3)
  1. JANUVIA [Suspect]
     Indication: DIABETES MELLITUS
     Dosage: 100 MG/DAILY/PO
     Route: 048
     Dates: start: 20080101
  2. ACTOS [Concomitant]
  3. METFORMIN HCL [Concomitant]

REACTIONS (3)
  - DIZZINESS [None]
  - DYSPNOEA [None]
  - UPPER RESPIRATORY TRACT INFECTION [None]
